FAERS Safety Report 16773428 (Version 1)
Quarter: 2019Q3

REPORT INFORMATION
  Report Type: Spontaneous
  Country: CA (occurrence: CA)
  Receive Date: 20190904
  Receipt Date: 20190904
  Transmission Date: 20191005
  Serious: Yes (Other)
  Sender: FDA-Public Use
  Company Number: CA-TEVA-2019-CA-1101603

PATIENT
  Age: 66 Year
  Sex: Female

DRUGS (13)
  1. INSULIN ASPART [Concomitant]
     Active Substance: INSULIN ASPART
  2. LEVOTHYROXINE. [Concomitant]
     Active Substance: LEVOTHYROXINE
  3. JANUVIA [Suspect]
     Active Substance: SITAGLIPTIN PHOSPHATE
     Route: 065
  4. GABAPENTIN. [Concomitant]
     Active Substance: GABAPENTIN
  5. METFORMIN [Concomitant]
     Active Substance: METFORMIN HYDROCHLORIDE
  6. RANITIDINE. [Concomitant]
     Active Substance: RANITIDINE
  7. CANTHACUR LIQ 0.7% [Suspect]
     Active Substance: CANTHARIDIN
     Indication: ANOGENITAL WARTS
     Route: 061
  8. HYDROCHLOROTHIAZIDE. [Concomitant]
     Active Substance: HYDROCHLOROTHIAZIDE
  9. CALCIUM [Concomitant]
     Active Substance: CALCIUM
  10. ELIQUIS [Suspect]
     Active Substance: APIXABAN
     Route: 065
  11. VITAMIN D [Concomitant]
     Active Substance: VITAMIN D NOS
  12. RANITIDINE. [Suspect]
     Active Substance: RANITIDINE
     Route: 065
  13. IRBESARTAN. [Concomitant]
     Active Substance: IRBESARTAN

REACTIONS (6)
  - Anogenital warts [Recovering/Resolving]
  - Vulvovaginal pain [Recovering/Resolving]
  - Off label use [Recovering/Resolving]
  - Skin plaque [Recovering/Resolving]
  - Application site vesicles [Recovering/Resolving]
  - Product communication issue [Recovering/Resolving]
